FAERS Safety Report 5276045-9 (Version None)
Quarter: 2007Q1

REPORT INFORMATION
  Report Type: 
  Country: None (occurrence: None)
  Receive Date: 20070321
  Receipt Date: 20070105
  Transmission Date: 20070707
  Serious: Yes (Other)
  Sender: FDA-Public Use
  Company Number: 234465K06USA

PATIENT
  Age: 40 Year
  Sex: Female

DRUGS (3)
  1. REBIF [Suspect]
     Indication: MULTIPLE SCLEROSIS
     Dosage: 44 MCG, 3 IN 1 WEEKS, SUBCUTANEOUS
     Route: 058
     Dates: start: 20041129, end: 20061020
  2. BETA BLOCKER/THIAZIDE (BETA BLOCKING AGENTS AND THIAZIDES) [Concomitant]
  3. PROTONIX [Concomitant]

REACTIONS (1)
  - CONVULSION [None]
